FAERS Safety Report 5266947-1 (Version None)
Quarter: 2007Q1

REPORT INFORMATION
  Report Type: 
  Country: None (occurrence: None)
  Receive Date: 20070316
  Receipt Date: 20070309
  Transmission Date: 20070707
  Serious: Yes (Hospitalization)
  Sender: FDA-Public Use
  Company Number: FR-AVENTIS-200710891FR

PATIENT
  Age: 51 Year
  Sex: Male
  Weight: 71 kg

DRUGS (16)
  1. TAXOTERE [Suspect]
     Route: 042
     Dates: start: 20060927, end: 20060927
  2. CISPLATIN [Suspect]
     Route: 042
     Dates: start: 20060927, end: 20060927
  3. NAVELBINE [Suspect]
     Route: 042
     Dates: start: 20060921, end: 20060921
  4. SKENAN [Concomitant]
  5. ACTISKENAN [Concomitant]
  6. XATRAL                             /00975301/ [Concomitant]
     Indication: DRUG USE FOR UNKNOWN INDICATION
     Dosage: DOSE: 0-0-1
     Route: 048
  7. KETOPROFEN [Concomitant]
     Indication: DRUG USE FOR UNKNOWN INDICATION
  8. PLAVIX [Concomitant]
     Indication: DRUG USE FOR UNKNOWN INDICATION
     Dosage: DOSE: 0-1-0
     Route: 048
  9. NOCTAMIDE [Concomitant]
     Indication: DRUG USE FOR UNKNOWN INDICATION
     Route: 048
     Dates: start: 20060918
  10. RIVOTRIL [Concomitant]
     Indication: DRUG USE FOR UNKNOWN INDICATION
     Route: 048
     Dates: start: 20060918
  11. ZOCOR [Concomitant]
     Indication: DRUG USE FOR UNKNOWN INDICATION
     Dosage: DOSE: 0-0-1
     Route: 048
     Dates: start: 20060918
  12. NEXIUM [Concomitant]
     Indication: DRUG USE FOR UNKNOWN INDICATION
     Dosage: DOSE: 0-0-1
     Route: 048
     Dates: start: 20060918
  13. SOLUPRED                           /00016201/ [Concomitant]
     Indication: DRUG USE FOR UNKNOWN INDICATION
     Route: 048
     Dates: start: 20060926, end: 20060928
  14. PRIMPERAN                          /00041901/ [Concomitant]
     Indication: DRUG USE FOR UNKNOWN INDICATION
     Route: 048
     Dates: start: 20060926, end: 20060928
  15. ARANESP [Concomitant]
     Indication: DRUG USE FOR UNKNOWN INDICATION
     Dates: start: 20060926, end: 20060928
  16. NEULASTA [Concomitant]
     Dates: start: 20060928, end: 20060928

REACTIONS (6)
  - COLITIS ULCERATIVE [None]
  - DIARRHOEA [None]
  - FEBRILE NEUTROPENIA [None]
  - MUCOSAL INFLAMMATION [None]
  - RENAL FAILURE ACUTE [None]
  - SEPSIS [None]
